FAERS Safety Report 8796839 (Version 2)
Quarter: 2015Q2

REPORT INFORMATION
  Report Type: Report from Study
  Country: US (occurrence: US)
  Receive Date: 20120919
  Receipt Date: 20150624
  Transmission Date: 20150821
  Serious: Yes (Death)
  Sender: FDA-Public Use
  Company Number: US-ROCHE-1123356

PATIENT
  Sex: Male

DRUGS (9)
  1. KYTRIL [Concomitant]
     Active Substance: GRANISETRON HYDROCHLORIDE
     Route: 065
  2. COUMADIN [Concomitant]
     Active Substance: WARFARIN SODIUM
  3. AVASTIN [Suspect]
     Active Substance: BEVACIZUMAB
     Indication: PROSTATE CANCER
     Route: 042
     Dates: start: 20051104
  4. TAXOTERE [Concomitant]
     Active Substance: DOCETAXEL
     Route: 065
  5. DECADRON [Concomitant]
     Active Substance: DEXAMETHASONE
  6. ARANESP [Concomitant]
     Active Substance: DARBEPOETIN ALFA
     Route: 065
  7. ZOMETA [Concomitant]
     Active Substance: ZOLEDRONIC ACID
     Route: 065
  8. TYLENOL [Concomitant]
     Active Substance: ACETAMINOPHEN
  9. NEULASTA [Concomitant]
     Active Substance: PEGFILGRASTIM
     Route: 065

REACTIONS (14)
  - Constipation [Unknown]
  - Arthralgia [Unknown]
  - Abdominal pain lower [Unknown]
  - Death [Fatal]
  - Back pain [Unknown]
  - Muscle spasms [Unknown]
  - Osteosclerosis [Unknown]
  - Asthenia [Unknown]
  - Discomfort [Unknown]
  - Off label use [Unknown]
  - Bone pain [Unknown]
  - Oedema [Unknown]
  - Deep vein thrombosis [Unknown]
  - Anaemia [Unknown]
